FAERS Safety Report 17121419 (Version 5)
Quarter: 2022Q4

REPORT INFORMATION
  Report Type: Spontaneous
  Country: FR (occurrence: FR)
  Receive Date: 20191206
  Receipt Date: 20221021
  Transmission Date: 20230112
  Serious: Yes (Hospitalization)
  Sender: FDA-Public Use
  Company Number: None

PATIENT
  Age: 54 Year
  Sex: Male
  Weight: 87.5 kg

DRUGS (37)
  1. PIPERACILLIN SODIUM\TAZOBACTAM SODIUM [Suspect]
     Active Substance: PIPERACILLIN SODIUM\TAZOBACTAM SODIUM
     Indication: Sepsis
     Dosage: 12 GRAM, QD
     Route: 042
     Dates: start: 20190406, end: 20190607
  2. PIPERACILLIN SODIUM\TAZOBACTAM SODIUM [Suspect]
     Active Substance: PIPERACILLIN SODIUM\TAZOBACTAM SODIUM
     Dosage: 12 GRAM, QD (1-1-1)
     Route: 042
     Dates: start: 20190604, end: 20190607
  3. PIPERACILLIN SODIUM\TAZOBACTAM SODIUM [Suspect]
     Active Substance: PIPERACILLIN SODIUM\TAZOBACTAM SODIUM
     Dosage: 12 GRAM, QD
     Route: 042
     Dates: start: 20190614, end: 20190624
  4. PROPOFOL [Suspect]
     Active Substance: PROPOFOL
     Indication: Anaesthesia
     Dosage: 1088 MILLIGRAM, QD
     Route: 042
     Dates: start: 20190515, end: 20190515
  5. PROPOFOL [Suspect]
     Active Substance: PROPOFOL
     Indication: Pain
  6. TRAMADOL [Suspect]
     Active Substance: TRAMADOL
     Indication: Pain
     Dosage: 50 MG,PRN(NUMBER OF INTERVALS IN A DAY1)
     Route: 048
     Dates: start: 20190520, end: 20190602
  7. TRAMADOL [Suspect]
     Active Substance: TRAMADOL
     Dosage: UNK
     Route: 048
     Dates: start: 20190520, end: 20190602
  8. PANTOPRAZOLE SODIUM [Suspect]
     Active Substance: PANTOPRAZOLE SODIUM
     Indication: Prophylaxis against gastrointestinal ulcer
     Dosage: 20 MG LE MATIN
     Route: 048
     Dates: start: 20190505
  9. NEFOPAM HYDROCHLORIDE [Suspect]
     Active Substance: NEFOPAM HYDROCHLORIDE
     Indication: Pain
     Dosage: 20 MILLIGRAM
     Route: 042
     Dates: start: 20190505
  10. NEFOPAM HYDROCHLORIDE [Suspect]
     Active Substance: NEFOPAM HYDROCHLORIDE
     Dosage: 20 MILLIGRAM
     Route: 042
     Dates: start: 20190515
  11. AMIKACIN [Suspect]
     Active Substance: AMIKACIN
     Indication: Sepsis
     Dosage: 1500 MILLIGRAM, QD
     Route: 042
     Dates: start: 20190604, end: 20190604
  12. AMIKACIN [Suspect]
     Active Substance: AMIKACIN
     Dosage: 1500 MILLIGRAM, QD
     Route: 065
     Dates: start: 20190604, end: 20190604
  13. CEFTRIAXONE SODIUM [Suspect]
     Active Substance: CEFTRIAXONE SODIUM
     Indication: Sepsis
     Dosage: 1 GRAM, QD
     Route: 042
     Dates: start: 20190607, end: 20190613
  14. METHYLPREDNISOLONE [Suspect]
     Active Substance: METHYLPREDNISOLONE
     Indication: Allergy prophylaxis
     Dosage: 60 MILLIGRAM, QD
     Route: 042
     Dates: start: 20190606, end: 20190606
  15. VANCOMYCIN [Suspect]
     Active Substance: VANCOMYCIN
     Indication: Sepsis
     Dosage: 3080 MILLIGRAM, QD
     Route: 042
     Dates: start: 20190605, end: 20190628
  16. VANCOMYCIN [Suspect]
     Active Substance: VANCOMYCIN
     Indication: Pain
  17. CETIRIZINE [Suspect]
     Active Substance: CETIRIZINE HYDROCHLORIDE
     Indication: Allergy prophylaxis
     Dosage: 10 MILLIGRAM, QD (0-0-1), 1 DOSAGE FORM
     Route: 048
     Dates: start: 20190606
  18. CETIRIZINE [Suspect]
     Active Substance: CETIRIZINE HYDROCHLORIDE
     Dosage: 10 MILLIGRAM, QD (0-0-1)
     Route: 048
     Dates: start: 20190606
  19. REMIFENTANIL [Suspect]
     Active Substance: REMIFENTANIL
     Indication: Anaesthesia
     Dosage: 796 MICROGRAM, QD
     Route: 042
     Dates: start: 20190515, end: 20190515
  20. MAGNESIUM OXIDE [Suspect]
     Active Substance: MAGNESIUM OXIDE
     Indication: Anaesthesia
     Dosage: 1 DOSAGE FORM, QD
     Route: 065
  21. INNOHEP [Suspect]
     Active Substance: TINZAPARIN SODIUM
     Indication: Thrombosis
     Dosage: 17000 INTERNATIONAL UNIT, QD
     Route: 058
     Dates: start: 20190505, end: 20190520
  22. OCTREOTIDE [Suspect]
     Active Substance: OCTREOTIDE
     Indication: Gastrointestinal haemorrhage
     Dosage: 600 MICROGRAM, QD
     Route: 042
     Dates: start: 20190605, end: 20190607
  23. OCTREOTIDE [Suspect]
     Active Substance: OCTREOTIDE
     Dosage: 1 DOSAGE FORM, QD
     Route: 042
     Dates: start: 20190605, end: 20190607
  24. MAGNESIUM [Suspect]
     Active Substance: MAGNESIUM
     Indication: Magnesium deficiency
     Dosage: 2-0-0
     Route: 048
     Dates: start: 20190618, end: 20190705
  25. MORPHINE SULFATE [Suspect]
     Active Substance: MORPHINE SULFATE
     Indication: Pain
     Dosage: 15 MILLIGRAM, QD
     Route: 048
     Dates: start: 20190629, end: 20190705
  26. TRAMADOL HYDROCHLORIDE [Suspect]
     Active Substance: TRAMADOL HYDROCHLORIDE
     Indication: Pain
     Dosage: 200 MILLIGRAM, QD
     Route: 042
     Dates: start: 20190515, end: 20190515
  27. LOVENOX [Suspect]
     Active Substance: ENOXAPARIN SODIUM
     Indication: Thrombosis prophylaxis
     Dosage: 4000 INTERNATIONAL UNIT, QD
     Route: 058
     Dates: start: 20190614
  28. LOVENOX [Suspect]
     Active Substance: ENOXAPARIN SODIUM
     Dosage: 4000 INTERNATIONAL UNIT, QD
     Route: 058
  29. COLCHICINE [Suspect]
     Active Substance: COLCHICINE
     Indication: Gout
     Dosage: 2 MILLIGRAM, QD
     Route: 048
     Dates: start: 20190615, end: 20190617
  30. VITAMIN K [Suspect]
     Active Substance: PHYTONADIONE
     Indication: Prothrombin time ratio decreased
     Dosage: 20 MILLIGRAM, QD
     Route: 042
     Dates: start: 20190604, end: 20190609
  31. POLARAMINE [Suspect]
     Active Substance: DEXCHLORPHENIRAMINE MALEATE
     Indication: Allergy prophylaxis
     Dosage: 5 MILLIGRAM, QD
     Route: 042
     Dates: start: 20190606, end: 20190606
  32. TINZAPARIN SODIUM [Suspect]
     Active Substance: TINZAPARIN SODIUM
     Indication: Thrombosis
     Dosage: 17000 INTERNATIONAL UNIT, QD
     Route: 058
     Dates: start: 20190505, end: 20190520
  33. DAPTOMYCIN [Suspect]
     Active Substance: DAPTOMYCIN
     Indication: Septic shock
     Dosage: 850 MILLIGRAM, QD
     Route: 042
     Dates: start: 20190701, end: 20190704
  34. PHYTONADIONE [Suspect]
     Active Substance: PHYTONADIONE
     Indication: Prothrombin time ratio decreased
     Dosage: 20 MILLIGRAM, QD
     Route: 042
     Dates: start: 20190604, end: 20190609
  35. DOLIPRANE [Concomitant]
     Active Substance: ACETAMINOPHEN
     Indication: Pain
     Dosage: 1 GRAM, UNK
     Route: 048
  36. DOLIPRANE [Concomitant]
     Active Substance: ACETAMINOPHEN
     Dosage: UNK
     Route: 048
  37. KARDEGIC [Concomitant]
     Active Substance: ASPIRIN DL-LYSINE
     Indication: Ischaemic cardiomyopathy
     Dosage: 0-1-0
     Route: 048

REACTIONS (1)
  - Drug reaction with eosinophilia and systemic symptoms [Not Recovered/Not Resolved]

NARRATIVE: CASE EVENT DATE: 20190701
